FAERS Safety Report 12720353 (Version 2)
Quarter: 2016Q4

REPORT INFORMATION
  Report Type: Spontaneous
  Country: US (occurrence: US)
  Receive Date: 20160907
  Receipt Date: 20161101
  Transmission Date: 20170207
  Serious: Yes (Other)
  Sender: FDA-Public Use
  Company Number: US-NOVOPROD-508486

PATIENT
  Age: 78 Year
  Sex: Female

DRUGS (1)
  1. LEVEMIR [Suspect]
     Active Substance: INSULIN DETEMIR
     Indication: DIABETES MELLITUS INADEQUATE CONTROL
     Dosage: UNKNOWN
     Route: 058

REACTIONS (2)
  - Diabetic retinopathy [Unknown]
  - Macular oedema [Unknown]
